FAERS Safety Report 8685101 (Version 2)
Quarter: 2012Q4

REPORT INFORMATION
  Report Type: 
  Country: US (occurrence: US)
  Receive Date: 20120726
  Receipt Date: 20120905
  Transmission Date: 20130627
  Serious: No
  Sender: FDA-Public Use
  Company Number: US-PFIZER INC-2012176647

PATIENT
  Age: 53 Year
  Sex: Male
  Weight: 77.1 kg

DRUGS (6)
  1. CELEBREX [Suspect]
     Indication: OSTEOARTHRITIS
     Dosage: 200 mg, 1x/day
     Route: 048
     Dates: start: 2010
  2. CELEBREX [Suspect]
     Indication: GOUT
  3. CELEBREX [Suspect]
     Indication: INFLAMMATION
  4. CELEBREX [Suspect]
     Indication: GOUT
  5. CELEBREX [Suspect]
     Indication: RED BLOOD CELL COUNT INCREASED
  6. PREVACID [Concomitant]
     Indication: GASTROOESOPHAGEAL REFLUX DISEASE
     Dosage: 1x/day

REACTIONS (7)
  - Gout [Unknown]
  - Red blood cell count increased [Unknown]
  - Psychomotor hyperactivity [Recovered/Resolved]
  - Abdominal discomfort [Recovered/Resolved]
  - Malaise [Recovered/Resolved]
  - Inflammation [Recovered/Resolved]
  - Therapeutic response unexpected [Unknown]
